FAERS Safety Report 7954092-3 (Version None)
Quarter: 2011Q4

REPORT INFORMATION
  Report Type: 
  Country: None (occurrence: None)
  Receive Date: 20111202
  Receipt Date: 20111126
  Transmission Date: 20120403
  Serious: Yes (Hospitalization)
  Sender: FDA-Public Use
  Company Number: GR-B.I. PHARMACEUTICALS,INC./RIDGEFIELD-2011-EU-00777GB

PATIENT
  Age: 71 Year
  Sex: Female

DRUGS (4)
  1. PRADAXA [Suspect]
     Indication: ATRIAL FIBRILLATION
     Dosage: 220 MG
     Route: 048
     Dates: start: 20110901, end: 20111126
  2. XANAX [Concomitant]
     Indication: ANXIETY
  3. ATACAND HCT [Concomitant]
     Indication: HYPERTENSION
  4. AMIODARONE HCL [Concomitant]
     Indication: ATRIAL FIBRILLATION

REACTIONS (2)
  - BLINDNESS [None]
  - ISCHAEMIC STROKE [None]
